FAERS Safety Report 5812361-7 (Version None)
Quarter: 2008Q3

REPORT INFORMATION
  Report Type: 
  Country: None (occurrence: None)
  Receive Date: 20080716
  Receipt Date: 20080704
  Transmission Date: 20090109
  Serious: Yes (Hospitalization, Other)
  Sender: FDA-Public Use
  Company Number: JP-PFIZER INC-2008055785

PATIENT
  Sex: Male
  Weight: 61.8 kg

DRUGS (7)
  1. ZYVOX [Suspect]
     Indication: STAPHYLOCOCCAL BACTERAEMIA
     Route: 042
     Dates: start: 20080625, end: 20080630
  2. AMICALIQ [Concomitant]
     Route: 042
  3. GASTER [Concomitant]
     Route: 042
  4. MULTAMIN [Concomitant]
     Route: 042
  5. FESIN [Concomitant]
     Route: 042
  6. ATARAX [Concomitant]
     Route: 042
  7. HYDROCORTISONE SODIUM SUCCINATE [Concomitant]
     Route: 042
     Dates: start: 20080623, end: 20080623

REACTIONS (2)
  - HEAD TITUBATION [None]
  - SALIVARY HYPERSECRETION [None]
